FAERS Safety Report 7726941-5 (Version None)
Quarter: 2011Q3

REPORT INFORMATION
  Report Type: 
  Country: None (occurrence: None)
  Receive Date: 20110902
  Receipt Date: 20110825
  Transmission Date: 20111222
  Serious: Yes (Other)
  Sender: FDA-Public Use
  Company Number: CA-JNJFOC-20110813057

PATIENT
  Sex: Female
  Weight: 88 kg

DRUGS (4)
  1. FOLIC ACID [Concomitant]
  2. SIMPONI [Suspect]
     Indication: RHEUMATOID ARTHRITIS
     Route: 058
  3. MELOXICAM [Concomitant]
  4. PREVACID [Concomitant]

REACTIONS (1)
  - TOOTH ABSCESS [None]
